FAERS Safety Report 4606781-6 (Version None)
Quarter: 2005Q1

REPORT INFORMATION
  Report Type: 
  Country: None (occurrence: None)
  Receive Date: 20050309
  Receipt Date: 20050218
  Transmission Date: 20050727
  Serious: Yes (Hospitalization)
  Sender: FDA-Public Use
  Company Number: USA050291178

PATIENT
  Age: 75 Year
  Sex: Female

DRUGS (11)
  1. FORTEO [Suspect]
     Indication: OSTEOPOROSIS
     Dosage: 20 UG/1 DAY
     Dates: start: 20040801
  2. DIOVAN [Concomitant]
  3. HYDROCHLOROTHIAZIDE [Concomitant]
  4. SODIUM CHLORIDE [Concomitant]
  5. FLONASE [Concomitant]
  6. LIBRAX [Concomitant]
  7. ADVAIR DISKUS 100/50 [Concomitant]
  8. PLAVIX [Concomitant]
  9. LIPITOR [Concomitant]
  10. SINGULAIR (MONTELUKAST) [Concomitant]
  11. PRILOSEC (OMEPRAZOLE RATIOPHARMA) [Concomitant]

REACTIONS (6)
  - BLOOD PRESSURE INCREASED [None]
  - DEHYDRATION [None]
  - HYPOTENSION [None]
  - INFLUENZA [None]
  - PHARMACEUTICAL PRODUCT COMPLAINT [None]
  - VIRAL UPPER RESPIRATORY TRACT INFECTION [None]
